FAERS Safety Report 7373161-2 (Version None)
Quarter: 2011Q1

REPORT INFORMATION
  Report Type: 
  Country: None (occurrence: None)
  Receive Date: 20110324
  Receipt Date: 20110321
  Transmission Date: 20110831
  Serious: Yes (Death)
  Sender: FDA-Public Use
  Company Number: US-CEPHALON-2011001315

PATIENT
  Sex: Male

DRUGS (3)
  1. ARANESP [Concomitant]
  2. TREANDA [Suspect]
     Route: 042
     Dates: end: 20090629
  3. PEGFILGRASTIM [Concomitant]

REACTIONS (1)
  - DISEASE PROGRESSION [None]
